FAERS Safety Report 12239126 (Version 1)
Quarter: 2016Q2

REPORT INFORMATION
  Report Type: Report from Study
  Country: BR (occurrence: BR)
  Receive Date: 20160405
  Receipt Date: 20160405
  Transmission Date: 20160815
  Serious: Yes (Other)
  Sender: FDA-Public Use
  Company Number: ALCN2016BR002346

PATIENT
  Age: 77 Year
  Sex: Female
  Weight: 55 kg

DRUGS (2)
  1. VITALUX PLUS [Suspect]
     Active Substance: VITAMINS
     Indication: RETINAL DISORDER
     Dosage: 1 DF, QD
     Route: 048
     Dates: start: 2012
  2. VITALUX PLUS [Suspect]
     Active Substance: VITAMINS
     Indication: RETINAL HAEMORRHAGE

REACTIONS (1)
  - Cataract [Recovering/Resolving]

NARRATIVE: CASE EVENT DATE: 20160323
